FAERS Safety Report 10020761 (Version 7)
Quarter: 2015Q2

REPORT INFORMATION
  Report Type: Report from Study
  Country: DK (occurrence: DK)
  Receive Date: 20140319
  Receipt Date: 20150625
  Transmission Date: 20150821
  Serious: Yes (Hospitalization)
  Sender: FDA-Public Use
  Company Number: DK-ROCHE-1362382

PATIENT
  Age: 67 Year
  Sex: Male
  Weight: 90 kg

DRUGS (27)
  1. PREDNISONE. [Suspect]
     Active Substance: PREDNISONE
     Indication: DIFFUSE LARGE B-CELL LYMPHOMA
     Dosage: DATE OF MOST RECENT DOSE PRIOR TO 1ST EPISODE OF GENERAL MALAISE AND FEBRILE NEUTROPENIA (100 MG) TA
     Route: 048
     Dates: start: 20140228
  2. SOLU-MEDROL [Concomitant]
     Active Substance: METHYLPREDNISOLONE SODIUM SUCCINATE
     Route: 065
     Dates: end: 20140502
  3. DALACIN [Concomitant]
     Active Substance: CLINDAMYCIN\CLINDAMYCIN PHOSPHATE
     Indication: INFECTION
     Route: 065
     Dates: start: 20140312, end: 20140319
  4. OBINUTUZUMAB [Suspect]
     Active Substance: OBINUTUZUMAB
     Indication: DIFFUSE LARGE B-CELL LYMPHOMA
     Dosage: DATE OF MOST RECENT DOSE PRIOR TO 1ST EPISODE OF GENERAL MALAISE (250 ML AT 4 MG/ML) TAKEN ON 28/FEB
     Route: 042
     Dates: start: 20140228
  5. KODIMAGNYL [Concomitant]
     Indication: COUGH
     Route: 065
     Dates: start: 20140226
  6. TAVEGYL [Concomitant]
     Active Substance: CLEMASTINE FUMARATE
     Indication: PREMEDICATION
     Route: 065
     Dates: start: 20140228, end: 20140725
  7. EMPERAL [Concomitant]
     Active Substance: METOCLOPRAMIDE HYDROCHLORIDE
     Indication: NAUSEA
     Route: 065
     Dates: start: 20140307, end: 20150502
  8. SULFAMETOXAZOL [Concomitant]
     Route: 065
     Dates: start: 20140226, end: 20140808
  9. ONDANSETRON [Concomitant]
     Active Substance: ONDANSETRON
     Route: 065
     Dates: start: 20140228, end: 20140228
  10. MERONEM [Concomitant]
     Active Substance: MEROPENEM
     Indication: INFECTION
     Route: 065
     Dates: start: 20140312, end: 20140321
  11. MERONEM [Concomitant]
     Active Substance: MEROPENEM
     Indication: FEBRILE NEUTROPENIA
  12. KODEIN [Concomitant]
     Active Substance: CODEINE PHOSPHATE
     Indication: COUGH
     Route: 065
     Dates: start: 20140310
  13. ACICLODAN [Concomitant]
     Indication: HERPES ZOSTER
     Route: 065
     Dates: start: 20140318, end: 20140822
  14. CYCLOPHOSPHAMIDE. [Suspect]
     Active Substance: CYCLOPHOSPHAMIDE
     Indication: DIFFUSE LARGE B-CELL LYMPHOMA
     Dosage: DATE OF MOST RECENT DOSE PRIOR TO 1ST EPISODE OF GENERAL MALAISE AND FEBRILE NEUTROPENIA (1600 MG) T
     Route: 042
     Dates: start: 20140228
  15. CIPROFLOXACIN. [Concomitant]
     Active Substance: CIPROFLOXACIN
     Indication: INFECTION
     Route: 065
     Dates: start: 20140326, end: 20140403
  16. ALLOPURINOL. [Concomitant]
     Active Substance: ALLOPURINOL
     Indication: PROPHYLAXIS
     Route: 065
     Dates: start: 20140226, end: 20140325
  17. SOLU-MEDROL [Concomitant]
     Active Substance: METHYLPREDNISOLONE SODIUM SUCCINATE
     Indication: HYPOTENSION
     Route: 065
     Dates: start: 20140321, end: 20140321
  18. BIOCLAVID [Concomitant]
     Active Substance: AMOXICILLIN\CLAVULANIC ACID
     Indication: INFECTION
     Route: 065
     Dates: start: 20140326, end: 20140330
  19. FLUCONAZOL [Concomitant]
     Active Substance: FLUCONAZOLE
     Indication: CANDIDA INFECTION
     Route: 065
     Dates: start: 20140310, end: 20140403
  20. CIPROFLOXACIN. [Concomitant]
     Active Substance: CIPROFLOXACIN
     Indication: INFECTION
     Route: 065
     Dates: start: 20140317, end: 20140321
  21. DOXORUBICIN [Suspect]
     Active Substance: DOXORUBICIN
     Indication: DIFFUSE LARGE B-CELL LYMPHOMA
     Dosage: DATE OF MOST RECENT DOSE PRIOR TO 1ST EPISODE OF GENERAL MALAISE AND FEBRILE NEUTROPENIA (104 MG) TA
     Route: 042
     Dates: start: 20140228
  22. PARACETAMOL [Concomitant]
     Active Substance: ACETAMINOPHEN
     Indication: PREMEDICATION
     Route: 065
     Dates: start: 20140228, end: 20140725
  23. SOLU-MEDROL [Concomitant]
     Active Substance: METHYLPREDNISOLONE SODIUM SUCCINATE
     Indication: PREMEDICATION
     Route: 065
     Dates: start: 20140228, end: 20140502
  24. GASTRO-TIMELETS [Concomitant]
     Route: 065
     Dates: start: 20140228, end: 20140502
  25. SERTRALINE [Concomitant]
     Active Substance: SERTRALINE HYDROCHLORIDE
     Indication: DEPRESSION
     Route: 065
     Dates: start: 20140328
  26. VINCRISTINE [Suspect]
     Active Substance: VINCRISTINE
     Indication: DIFFUSE LARGE B-CELL LYMPHOMA
     Dosage: DATE OF MOST RECENT DOSE PRIOR TO 1ST EPISODE OF GENERAL MALAISE AND FEBRILE NEUTROPENIA (2 MG) TAKE
     Route: 040
     Dates: start: 20140228
  27. GLUCOSE [Concomitant]
     Active Substance: DEXTROSE
     Route: 042
     Dates: start: 20140330, end: 20140330

REACTIONS (4)
  - Malaise [Recovered/Resolved]
  - Malaise [Recovered/Resolved]
  - Neutropenia [Recovered/Resolved]
  - Febrile neutropenia [Recovered/Resolved]

NARRATIVE: CASE EVENT DATE: 20140306
